FAERS Safety Report 21715610 (Version 1)
Quarter: 2022Q4

REPORT INFORMATION
  Report Type: Spontaneous
  Country: US (occurrence: None)
  Receive Date: 20221210
  Receipt Date: 20221210
  Transmission Date: 20230113
  Serious: Yes (Disabling, Other)
  Sender: FDA-Public Use
  Company Number: None

PATIENT
  Age: 43 Year
  Sex: Female
  Weight: 62.55 kg

DRUGS (15)
  1. SUBUTEX [Suspect]
     Active Substance: BUPRENORPHINE HYDROCHLORIDE
     Indication: Pain
     Dosage: OTHER QUANTITY : 45 TABLET(S);?FREQUENCY : TWICE A DAY;?
     Route: 060
     Dates: start: 20120114
  2. SUBUTEX [Suspect]
     Active Substance: BUPRENORPHINE HYDROCHLORIDE
     Indication: Craniocerebral injury
  3. SUBOXONE [Suspect]
     Active Substance: BUPRENORPHINE HYDROCHLORIDE\NALOXONE HYDROCHLORIDE
  4. ATENOLOL [Concomitant]
     Active Substance: ATENOLOL
  5. KLONOPIN [Concomitant]
     Active Substance: CLONAZEPAM
  6. GLUCOSAMINE [Concomitant]
  7. Chondrotin [Concomitant]
  8. BENADRYL [Concomitant]
     Active Substance: DIPHENHYDRAMINE HYDROCHLORIDE
  9. STOOL SOFTENER [Concomitant]
  10. FAMOTIDINE [Concomitant]
  11. FLAXSEED [Concomitant]
     Active Substance: FLAX SEED
  12. Calcium with Vitsmin D [Concomitant]
  13. SERTRALINE [Concomitant]
     Active Substance: SERTRALINE HYDROCHLORIDE
  14. FLEXIBILITY [Concomitant]
  15. PHENERGAN [Concomitant]
     Active Substance: PROMETHAZINE HYDROCHLORIDE

REACTIONS (14)
  - Dental caries [None]
  - Tooth loss [None]
  - Denture wearer [None]
  - Inability to afford medication [None]
  - Emotional distress [None]
  - Legal problem [None]
  - Euphoric mood [None]
  - Arthropathy [None]
  - Job dissatisfaction [None]
  - Joint lock [None]
  - Drug monitoring procedure not performed [None]
  - Quality of life decreased [None]
  - Drug dependence [None]
  - Product complaint [None]

NARRATIVE: CASE EVENT DATE: 20200220
